FAERS Safety Report 10178620 (Version 1)
Quarter: 2014Q2

REPORT INFORMATION
  Report Type: Spontaneous
  Country: US (occurrence: None)
  Receive Date: 20140516
  Receipt Date: 20140516
  Transmission Date: 20141212
  Serious: No
  Sender: FDA-Public Use
  Company Number: None

PATIENT
  Age: 79 Year
  Sex: Male
  Weight: 72.58 kg

DRUGS (2)
  1. SIMVASTATIN [Suspect]
     Indication: CEREBROVASCULAR ACCIDENT
     Dosage: 30 PILLULES,  BY MOUTH, 1 @ NIGHT
     Dates: start: 20140218
  2. QUININE [Concomitant]

REACTIONS (2)
  - Diarrhoea [None]
  - Adverse event [None]
